FAERS Safety Report 5447855-X (Version None)
Quarter: 2007Q3

REPORT INFORMATION
  Report Type: 
  Country: None (occurrence: None)
  Receive Date: 20070910
  Receipt Date: 20070904
  Transmission Date: 20080115
  Serious: Yes (Hospitalization)
  Sender: FDA-Public Use
  Company Number: HK-BRISTOL-MYERS SQUIBB COMPANY-13888201

PATIENT
  Age: 43 Year
  Sex: Male

DRUGS (3)
  1. CETUXIMAB [Suspect]
     Indication: NASOPHARYNGEAL CANCER
     Route: 042
     Dates: start: 20070816, end: 20070816
  2. CISPLATIN [Suspect]
     Indication: NASOPHARYNGEAL CANCER
     Route: 042
     Dates: start: 20070816, end: 20070816
  3. RADIATION THERAPY [Suspect]
     Indication: NASOPHARYNGEAL CANCER

REACTIONS (4)
  - DYSPHAGIA [None]
  - MUCOSAL INFLAMMATION [None]
  - PYREXIA [None]
  - VOMITING [None]
